FAERS Safety Report 21800864 (Version 1)
Quarter: 2022Q4

REPORT INFORMATION
  Report Type: Report from Study
  Country: US (occurrence: US)
  Receive Date: 20221230
  Receipt Date: 20221230
  Transmission Date: 20230113
  Serious: Yes (Other)
  Sender: FDA-Public Use
  Company Number: US-ABBVIE-4254618

PATIENT
  Sex: Female

DRUGS (1)
  1. HUMIRA [Suspect]
     Active Substance: ADALIMUMAB
     Indication: Psoriatic arthropathy
     Dosage: 40MG CITRATE FREE
     Route: 058

REACTIONS (8)
  - Systemic lupus erythematosus [Recovering/Resolving]
  - Musculoskeletal disorder [Unknown]
  - Influenza [Unknown]
  - COVID-19 [Unknown]
  - Bronchitis [Unknown]
  - Abdominal discomfort [Unknown]
  - Sinusitis [Unknown]
  - Psoriatic arthropathy [Recovering/Resolving]

NARRATIVE: CASE EVENT DATE: 20220101
